FAERS Safety Report 4454574-5 (Version None)
Quarter: 2004Q3

REPORT INFORMATION
  Report Type: 
  Country: None (occurrence: None)
  Receive Date: 20040920
  Receipt Date: 20040920
  Transmission Date: 20050211
  Serious: Yes (Hospitalization)
  Sender: FDA-Public Use
  Company Number: None

PATIENT
  Sex: Male
  Weight: 80.7403 kg

DRUGS (2)
  1. GEMZAR [Suspect]
  2. CELEBREX [Suspect]

REACTIONS (3)
  - DEHYDRATION [None]
  - DYSARTHRIA [None]
  - MENTAL STATUS CHANGES [None]
